FAERS Safety Report 19470410 (Version 11)
Quarter: 2022Q4

REPORT INFORMATION
  Report Type: Spontaneous
  Country: IN (occurrence: IN)
  Receive Date: 20210628
  Receipt Date: 20221014
  Transmission Date: 20230112
  Serious: Yes (Death, Other)
  Sender: FDA-Public Use
  Company Number: IN-PFIZER INC-2020009439

PATIENT
  Age: 54 Year
  Sex: Female

DRUGS (6)
  1. PALBOCICLIB [Suspect]
     Active Substance: PALBOCICLIB
     Indication: Breast cancer metastatic
     Dosage: 125 MG ONCE DAILY, D1- D21
     Route: 048
     Dates: start: 20191224
  2. PALBOCICLIB [Suspect]
     Active Substance: PALBOCICLIB
     Dosage: 125 MG, 1X/DAY
     Route: 048
     Dates: start: 20191228
  3. PALBOCICLIB [Suspect]
     Active Substance: PALBOCICLIB
     Dosage: 125 MG ONCE DAILY, D1- D21
     Route: 048
     Dates: start: 20210619
  4. FULVESTRANT [Concomitant]
     Active Substance: FULVESTRANT
     Dosage: 500 MG, MONTHLY
     Route: 030
  5. ZOLEDRONIC ACID [Concomitant]
     Active Substance: ZOLEDRONIC ACID
     Dosage: 4 MG
  6. BECADEXAMINE [Concomitant]
     Dosage: 1 DF, 1X/DAY

REACTIONS (18)
  - Death [Fatal]
  - Mitral valve incompetence [Unknown]
  - Lower limb fracture [Recovered/Resolved]
  - Pancytopenia [Unknown]
  - Thrombocytopenia [Unknown]
  - Leukopenia [Unknown]
  - Upper limb fracture [Unknown]
  - Bone pain [Unknown]
  - Chest discomfort [Unknown]
  - Pulmonary mass [Unknown]
  - Pyrexia [Unknown]
  - Neutrophil count decreased [Unknown]
  - Vomiting [Unknown]
  - Neoplasm progression [Unknown]
  - Anaemia [Unknown]
  - Malaise [Unknown]
  - Pain [Unknown]
  - Off label use [Unknown]

NARRATIVE: CASE EVENT DATE: 20210708
